FAERS Safety Report 16253496 (Version 5)
Quarter: 2025Q1

REPORT INFORMATION
  Report Type: Spontaneous
  Country: US (occurrence: US)
  Receive Date: 20190430
  Receipt Date: 20250205
  Transmission Date: 20250409
  Serious: No
  Sender: BIOGEN
  Company Number: US-BIOGEN-2019BI00721410

PATIENT
  Sex: Male

DRUGS (1)
  1. TYSABRI [Suspect]
     Active Substance: NATALIZUMAB
     Indication: Multiple sclerosis
     Dosage: INFUSED OVER 1 HOUR
     Route: 050
     Dates: start: 20190218

REACTIONS (7)
  - Product dose omission issue [Unknown]
  - Multiple sclerosis [Unknown]
  - Pain [Unknown]
  - Dyspepsia [Unknown]
  - Prostatic disorder [Unknown]
  - Hypoacusis [Unknown]
  - Memory impairment [Unknown]
